FAERS Safety Report 6306864-9 (Version None)
Quarter: 2009Q3

REPORT INFORMATION
  Report Type: 
  Country: None (occurrence: None)
  Receive Date: 20090811
  Receipt Date: 20090811
  Transmission Date: 20100115
  Serious: Yes (Other)
  Sender: FDA-Public Use
  Company Number: None

PATIENT
  Age: 40 Year
  Sex: Female
  Weight: 86.1834 kg

DRUGS (1)
  1. FROVA [Suspect]
     Indication: MIGRAINE WITH AURA
     Dosage: 1 PILL 1 PO TAKEN ONCE
     Route: 048

REACTIONS (5)
  - CONVULSION [None]
  - DYSKINESIA [None]
  - DYSTONIA [None]
  - GRIMACING [None]
  - MUSCLE SPASMS [None]
